FAERS Safety Report 15279630 (Version 2)
Quarter: 2018Q3

REPORT INFORMATION
  Report Type: Spontaneous
  Country: US (occurrence: US)
  Receive Date: 20180815
  Receipt Date: 20180903
  Transmission Date: 20181010
  Serious: No
  Sender: FDA-Public Use
  Company Number: US-PFIZER INC-2018126750

PATIENT
  Age: 56 Year
  Sex: Female
  Weight: 54.42 kg

DRUGS (5)
  1. XANAX [Concomitant]
     Active Substance: ALPRAZOLAM
     Dosage: UNK, AS NEEDED
  2. CALCIUM [Concomitant]
     Active Substance: CALCIUM
     Indication: FRACTURE
     Dosage: UNK
  3. VITAMIN D [Concomitant]
     Active Substance: CHOLECALCIFEROL
     Indication: FRACTURE
     Dosage: UNK
  4. CHANTIX [Suspect]
     Active Substance: VARENICLINE TARTRATE
     Indication: SMOKING CESSATION THERAPY
     Dosage: UNK
  5. NAPROXEN. [Concomitant]
     Active Substance: NAPROXEN
     Indication: ROTATOR CUFF SYNDROME
     Dosage: 500 MG, 2X/DAY (AS NEEDED)
     Route: 048

REACTIONS (1)
  - Irritability [Unknown]
